FAERS Safety Report 5048501-X (Version None)
Quarter: 2006Q3

REPORT INFORMATION
  Report Type: 
  Country: None (occurrence: None)
  Receive Date: 20060705
  Receipt Date: 20060625
  Transmission Date: 20061208
  Serious: Yes (Hospitalization)
  Sender: FDA-Public Use
  Company Number: USA-2006-0024455

PATIENT
  Age: 73 Year
  Sex: Female

DRUGS (4)
  1. CEFDITOREN PIVOXIL (SIMILAR TO NDA 21-222) (CEFDITOREN PIVOXIL) UNKNOW [Suspect]
     Indication: BRONCHITIS ACUTE
     Dosage: 300 MG, DAILY, ORAL
     Route: 048
     Dates: start: 20060609, end: 20060610
  2. LEVOFLOXACIN [Suspect]
     Indication: BRONCHITIS ACUTE
     Dosage: 300 MG, DAILY, ORAL
     Route: 048
     Dates: start: 20060603, end: 20060606
  3. LOXONIN (LOXOPROFEN SODIUM) [Concomitant]
  4. PL [Concomitant]

REACTIONS (6)
  - ALANINE AMINOTRANSFERASE INCREASED [None]
  - ASPARTATE AMINOTRANSFERASE INCREASED [None]
  - BLOOD ALKALINE PHOSPHATASE INCREASED [None]
  - BLOOD LACTATE DEHYDROGENASE INCREASED [None]
  - ERYTHEMA [None]
  - LIVER DISORDER [None]
